FAERS Safety Report 18169876 (Version 1)
Quarter: 2020Q3

REPORT INFORMATION
  Report Type: Spontaneous
  Country: DE (occurrence: DE)
  Receive Date: 20200819
  Receipt Date: 20200819
  Transmission Date: 20201103
  Serious: Yes (Life-Threatening, Hospitalization)
  Sender: FDA-Public Use
  Company Number: DE-ACCORD-196280

PATIENT
  Age: 87 Year
  Sex: Female

DRUGS (9)
  1. CLOPIDOGREL [Suspect]
     Active Substance: CLOPIDOGREL BISULFATE
     Indication: PRODUCT USED FOR UNKNOWN INDICATION
     Dosage: 75 MG, 1?0?0?0
  2. FERRO?SANOL DUODENAL [Concomitant]
     Active Substance: FERROUS GLYCINE SULFATE
     Dosage: 1?0?0?0,IRON(II)?COMPLEX
  3. PANTOPRAZOLE [Concomitant]
     Active Substance: PANTOPRAZOLE
     Dosage: 40 MG, 1?0?1?0
  4. ACETYLSALICYLIC ACID [Suspect]
     Active Substance: ASPIRIN
     Indication: PRODUCT USED FOR UNKNOWN INDICATION
     Dosage: 100 MG, 1?0?0?0
  5. BISOPROLOL [Concomitant]
     Active Substance: BISOPROLOL
     Dosage: 5 MG, 1?0?1?0
  6. TORASEMIDE [Concomitant]
     Active Substance: TORSEMIDE
     Dosage: 5 MG, 1?0?0?0
  7. FLORADIX WITH IRON [Concomitant]
     Dosage: 1.5 MG, 1?1?1?0, FLORADIX WITH IRON
  8. POTASSIUM VERLA [Concomitant]
     Dosage: 1?0?0?0
  9. MAGNESIUM SULFATE. [Concomitant]
     Active Substance: MAGNESIUM SULFATE
     Dosage: 0?0?0?1

REACTIONS (9)
  - Wound [Unknown]
  - General physical health deterioration [Unknown]
  - Fall [Unknown]
  - Face injury [Unknown]
  - Pallor [Unknown]
  - Haematemesis [Unknown]
  - Haematochezia [Unknown]
  - Dizziness [Unknown]
  - Anaemia [Unknown]
